FAERS Safety Report 7418727-6 (Version None)
Quarter: 2011Q2

REPORT INFORMATION
  Report Type: 
  Country: None (occurrence: None)
  Receive Date: 20110415
  Receipt Date: 20110404
  Transmission Date: 20111010
  Serious: Yes (Hospitalization)
  Sender: FDA-Public Use
  Company Number: US-WATSON-2011-05253

PATIENT
  Age: 59 Year
  Sex: Male

DRUGS (2)
  1. BACLOFEN [Suspect]
     Indication: PRODUCT USED FOR UNKNOWN INDICATION
     Dosage: UNK
  2. TIZANIDINE [Suspect]
     Indication: PRODUCT USED FOR UNKNOWN INDICATION
     Dosage: UNK

REACTIONS (8)
  - DRUG ABUSE [None]
  - WITHDRAWAL SYNDROME [None]
  - COGWHEEL RIGIDITY [None]
  - DELIRIUM [None]
  - HALLUCINATION, VISUAL [None]
  - AUTONOMIC NERVOUS SYSTEM IMBALANCE [None]
  - DRUG INTERACTION [None]
  - MUSCLE RIGIDITY [None]
